FAERS Safety Report 23837135 (Version 2)
Quarter: 2024Q2

REPORT INFORMATION
  Report Type: Spontaneous
  Country: NL (occurrence: NL)
  Receive Date: 20240509
  Receipt Date: 20240514
  Transmission Date: 20240716
  Serious: Yes (Life-Threatening, Hospitalization)
  Sender: FDA-Public Use
  Company Number: None

PATIENT
  Age: 88 Year
  Sex: Female
  Weight: 80 kg

DRUGS (2)
  1. ALTEPLASE [Suspect]
     Active Substance: ALTEPLASE
     Indication: Product used for unknown indication
     Dosage: (10% BOLUS, THEN PUMP IN 60 MIN.)?INFUSION POWDER
     Route: 040
     Dates: start: 20240423, end: 20240423
  2. PERINDOPRIL [Concomitant]
     Active Substance: PERINDOPRIL
     Indication: Product used for unknown indication
     Dosage: X IN THE MORNING
     Dates: end: 20240423

REACTIONS (2)
  - Tongue oedema [Recovering/Resolving]
  - Stridor [Recovering/Resolving]
